FAERS Safety Report 17399867 (Version 1)
Quarter: 2020Q1

REPORT INFORMATION
  Report Type: Spontaneous
  Country: US (occurrence: US)
  Receive Date: 20200125
  Receipt Date: 20200125
  Transmission Date: 20200409
  Serious: No
  Sender: FDA-Public Use
  Company Number: None

PATIENT
  Age: 42 Year
  Sex: Female

DRUGS (1)
  1. SIROLIMUS TAB 1MG [Suspect]
     Active Substance: SIROLIMUS
     Route: 048
     Dates: start: 20200109

REACTIONS (3)
  - Infection [None]
  - Transplant failure [None]
  - Hepatic artery thrombosis [None]

NARRATIVE: CASE EVENT DATE: 20200125
